FAERS Safety Report 23389041 (Version 1)
Quarter: 2024Q1

REPORT INFORMATION
  Report Type: Spontaneous
  Country: US (occurrence: US)
  Receive Date: 20240110
  Receipt Date: 20240110
  Transmission Date: 20240410
  Serious: No
  Sender: FDA-Public Use
  Company Number: US-PFIZER INC-202400004941

PATIENT
  Age: 64 Year
  Sex: Female

DRUGS (39)
  1. IBRANCE [Suspect]
     Active Substance: PALBOCICLIB
     Dosage: 125MG ONCE DAILY FOR 21 DAYS ON, THEN 7 DAYS OFF
     Dates: start: 20231227
  2. ASPIRIN [Concomitant]
     Active Substance: ASPIRIN
  3. BIOTIN [Concomitant]
     Active Substance: BIOTIN
  4. BORON [Concomitant]
     Active Substance: BORON
  5. CALCIUM [Concomitant]
     Active Substance: CALCIUM
  6. CHROMIUM [Concomitant]
     Active Substance: CHROMIC CHLORIDE\CHROMIUM
  7. CLARITIN [Concomitant]
     Active Substance: LORATADINE
  8. CLONAZEPAM [Concomitant]
     Active Substance: CLONAZEPAM
  9. COPPER [Concomitant]
     Active Substance: COPPER
  10. DOCUSATE [Concomitant]
     Active Substance: DOCUSATE
  11. FASLODEX [Concomitant]
     Active Substance: FULVESTRANT
  12. FOLIC ACID [Concomitant]
     Active Substance: FOLIC ACID
  13. IBUPROFEN [Concomitant]
     Active Substance: IBUPROFEN
  14. IODINE [Concomitant]
     Active Substance: IODINE
  15. IRON [Concomitant]
     Active Substance: IRON
  16. LAMICTAL [Concomitant]
     Active Substance: LAMOTRIGINE
  17. LOSARTAN AND HYDROCHLOROTHIAZIDE [Concomitant]
     Active Substance: HYDROCHLOROTHIAZIDE\LOSARTAN POTASSIUM
  18. MAGNESIUM OXIDE [Concomitant]
     Active Substance: MAGNESIUM OXIDE
  19. MANGANESE [Concomitant]
     Active Substance: MANGANESE CHLORIDE
  20. METOPROLOL [Concomitant]
     Active Substance: METOPROLOL
  21. NIACIN [Concomitant]
     Active Substance: NIACIN
  22. PANTOPRAZOLE [Concomitant]
     Active Substance: PANTOPRAZOLE
  23. PANTOTHENIC ACID [Concomitant]
     Active Substance: PANTOTHENIC ACID
  24. POTASSIUM CITRATE [Concomitant]
     Active Substance: POTASSIUM CITRATE
  25. QUETIAPINE [Concomitant]
     Active Substance: QUETIAPINE
  26. SELENIUM [Concomitant]
     Active Substance: SELENIUM
  27. SENNA LEAF [Concomitant]
     Active Substance: SENNA LEAF
  28. TRINTELLIX [Concomitant]
     Active Substance: VORTIOXETINE HYDROBROMIDE
  29. RETINOL [Concomitant]
     Active Substance: RETINOL
  30. VITAMIN B1 [Concomitant]
     Active Substance: THIAMINE HYDROCHLORIDE
  31. COBAMAMIDE [Concomitant]
     Active Substance: COBAMAMIDE
  32. VITAMIN B2 [Concomitant]
     Active Substance: RIBOFLAVIN
  33. VITAMIN B6 [Concomitant]
     Active Substance: PYRIDOXINE HYDROCHLORIDE
  34. VITAMIN C [ASCORBIC ACID;GLUCOSE] [Concomitant]
  35. VITAMIN D3 [Concomitant]
     Active Substance: CHOLECALCIFEROL
  36. VITAMIN E [Concomitant]
     Active Substance: .ALPHA.-TOCOPHEROL
  37. VITAMIN K1 [Concomitant]
     Active Substance: PHYTONADIONE
  38. ZINC OXIDE [Concomitant]
     Active Substance: ZINC OXIDE
  39. ZOFRAN [Concomitant]
     Active Substance: ONDANSETRON HYDROCHLORIDE

REACTIONS (1)
  - Fatigue [Not Recovered/Not Resolved]

NARRATIVE: CASE EVENT DATE: 20231227
